FAERS Safety Report 12226584 (Version 3)
Quarter: 2016Q2

REPORT INFORMATION
  Report Type: Report from Study
  Country: GT (occurrence: GT)
  Receive Date: 20160331
  Receipt Date: 20160503
  Transmission Date: 20160815
  Serious: Yes (Other)
  Sender: FDA-Public Use
  Company Number: PHHY2016GT026222

PATIENT
  Age: 39 Year
  Sex: Female

DRUGS (5)
  1. SEROQUEL [Concomitant]
     Active Substance: QUETIAPINE FUMARATE
     Indication: PRODUCT USED FOR UNKNOWN INDICATION
     Dosage: 300 MG, UNK
     Route: 065
     Dates: start: 20160306
  2. XOLAIR [Suspect]
     Active Substance: OMALIZUMAB
     Dosage: UNK
     Route: 065
     Dates: start: 20160404
  3. XOLAIR [Suspect]
     Active Substance: OMALIZUMAB
     Indication: CHRONIC SPONTANEOUS URTICARIA
     Dosage: UNK
     Route: 065
     Dates: start: 20160125
  4. TEGRETOL [Suspect]
     Active Substance: CARBAMAZEPINE
     Indication: PRODUCT USED FOR UNKNOWN INDICATION
     Dosage: 600 MG, UNK
     Route: 065
     Dates: start: 2011
  5. XOLAIR [Suspect]
     Active Substance: OMALIZUMAB
     Dosage: 300 MG, UNK
     Route: 065
     Dates: start: 20160225

REACTIONS (28)
  - Accident [Unknown]
  - Peripheral swelling [Unknown]
  - Depression [Not Recovered/Not Resolved]
  - Headache [Recovering/Resolving]
  - Dehydration [Unknown]
  - Bacterial test positive [Unknown]
  - Red blood cell count decreased [Unknown]
  - Pruritus [Recovered/Resolved]
  - Diarrhoea [Unknown]
  - Pyrexia [Unknown]
  - Red blood cell sedimentation rate increased [Unknown]
  - Urticaria [Recovered/Resolved]
  - Malaise [Unknown]
  - Chikungunya virus infection [Unknown]
  - Arthralgia [Unknown]
  - Eye pain [Recovering/Resolving]
  - Gastrointestinal infection [Unknown]
  - Hypokalaemia [Unknown]
  - Inflammation [Recovered/Resolved]
  - Nausea [Unknown]
  - Ocular hyperaemia [Recovering/Resolving]
  - Eye haemorrhage [Unknown]
  - Lip swelling [Unknown]
  - Hypersensitivity [Recovered/Resolved]
  - Urticaria [Recovered/Resolved]
  - Urticaria [Recovered/Resolved]
  - Urticaria [Recovered/Resolved]
  - General physical health deterioration [Unknown]

NARRATIVE: CASE EVENT DATE: 20160219
